FAERS Safety Report 5751620-3 (Version None)
Quarter: 2008Q2

REPORT INFORMATION
  Report Type: 
  Country: None (occurrence: None)
  Receive Date: 20080528
  Receipt Date: 20080520
  Transmission Date: 20081010
  Serious: Yes (Disabling)
  Sender: FDA-Public Use
  Company Number: PHEH2008US03692

PATIENT
  Sex: Female
  Weight: 47 kg

DRUGS (4)
  1. SANDOSTATIN LAR [Suspect]
     Indication: SHORT-BOWEL SYNDROME
     Dosage: 20 MG,
     Dates: start: 20070913
  2. SANDOSTATIN [Concomitant]
     Indication: SHORT-BOWEL SYNDROME
     Dosage: 100 MCG TID
     Route: 058
  3. IMODIUM [Concomitant]
     Dosage: 8MG QID
     Route: 048
  4. LOMOTIL [Concomitant]
     Dosage: 5MG QID
     Route: 048

REACTIONS (2)
  - FAT NECROSIS [None]
  - INJECTION SITE ATROPHY [None]
